FAERS Safety Report 10440943 (Version 6)
Quarter: 2015Q4

REPORT INFORMATION
  Report Type: Report from Study
  Country: AU (occurrence: AU)
  Receive Date: 20140909
  Receipt Date: 20151113
  Transmission Date: 20160304
  Serious: Yes (Other)
  Sender: FDA-Public Use
  Company Number: AU-VERTEX PHARMACEUTICALS-2014-003762

PATIENT
  Sex: Male

DRUGS (13)
  1. VX-809/VX-770 COMBINATION [Suspect]
     Active Substance: IVACAFTOR\LUMACAFTOR
     Dosage: LUMACAFTOR 400 MG/IVACAFTOR 250 MG BID
     Route: 048
     Dates: start: 20140917, end: 20141002
  2. GLUCOLYTE [Concomitant]
     Indication: ELECTROLYTE SUBSTITUTION THERAPY
     Dosage: 1 SACHET QID
     Route: 048
     Dates: start: 1995
  3. SALT [Concomitant]
     Active Substance: SODIUM CHLORIDE
     Indication: ELECTROLYTE SUBSTITUTION THERAPY
     Dosage: 10 DF, QD
     Route: 048
     Dates: start: 1994
  4. HUMALOG [Concomitant]
     Active Substance: INSULIN LISPRO
     Indication: CYSTIC FIBROSIS RELATED DIABETES
     Dosage: 0-9 UNITS TID
     Route: 058
     Dates: start: 2009
  5. OXAZEPAM. [Concomitant]
     Active Substance: OXAZEPAM
     Indication: PARASOMNIA
     Dosage: 15 MG, QD
     Route: 048
     Dates: start: 2009
  6. HYPERTONIC SALINE SOLUTION [Concomitant]
     Active Substance: SODIUM CHLORIDE
     Indication: CYSTIC FIBROSIS LUNG
     Dosage: UNK, QD
     Route: 055
     Dates: start: 2007
  7. FLUTICASONE W/SALMETEROL [Concomitant]
     Active Substance: FLUTICASONE PROPIONATE\SALMETEROL XINAFOATE
     Indication: BRONCHIAL HYPERREACTIVITY
     Dosage: 125/25 MDI 2 INHALATIONS BID
     Route: 055
     Dates: start: 20140917, end: 20141002
  8. VX-809/VX-770 COMBINATION [Suspect]
     Active Substance: IVACAFTOR\LUMACAFTOR
     Indication: CYSTIC FIBROSIS
     Dosage: LUMACAFTOR 400 MG/IVACAFTOR 250 MG BID
     Route: 048
     Dates: start: 20140213, end: 20140901
  9. FLUTICASONE FUROATE [Concomitant]
     Active Substance: FLUTICASONE FUROATE
     Indication: SINUS DISORDER
     Dosage: 1 PUFF QD
     Route: 045
     Dates: start: 2013
  10. PARACETAMOL [Concomitant]
     Active Substance: ACETAMINOPHEN
     Indication: SINUS DISORDER
     Dosage: 2 TABS QD PRN
     Route: 048
     Dates: start: 2007
  11. INSULIN GLARGINE [Concomitant]
     Active Substance: INSULIN GLARGINE
     Indication: CYSTIC FIBROSIS RELATED DIABETES
     Dosage: 16-18 UNITS BID
     Route: 058
     Dates: start: 2009
  12. CREON [Concomitant]
     Active Substance: PANCRELIPASE AMYLASE\PANCRELIPASE LIPASE\PANCRELIPASE PROTEASE
     Indication: PANCREATIC INSUFFICIENCY
     Dosage: 3-5 CAPS W/MEALS AND SNACKS
     Route: 048
     Dates: start: 2003
  13. ABDEC VITAMIN [Concomitant]
     Indication: VITAMIN SUPPLEMENTATION
     Dosage: 2 DF, QD
     Route: 048
     Dates: start: 2008

REACTIONS (2)
  - Forced expiratory volume decreased [Recovered/Resolved]
  - Forced expiratory volume decreased [Recovered/Resolved]

NARRATIVE: CASE EVENT DATE: 20140901
